FAERS Safety Report 8517021-X (Version None)
Quarter: 2012Q3

REPORT INFORMATION
  Report Type: 
  Country: None (occurrence: None)
  Receive Date: 20120706
  Receipt Date: 20120625
  Transmission Date: 20120928
  Serious: Yes (Hospitalization)
  Sender: FDA-Public Use
  Company Number: 2012-002368

PATIENT
  Age: 60 Year
  Sex: Female

DRUGS (8)
  1. ACTONEL [Suspect]
     Dosage: 30 MG ONCE WEEKLY, ORAL
     Route: 048
     Dates: end: 20120220
  2. ATRIPLA [Suspect]
     Indication: HIV INFECTION
     Dosage: 1 DF DAILY, ORAL
     Route: 048
     Dates: end: 20120220
  3. INDAPAMIDE [Suspect]
     Indication: HYPERTENSION
     Dosage: 2.5 MG, DAILY, ORAL
     Route: 048
     Dates: end: 20120218
  4. EZETIMIBE/SIMVASTATIN [Concomitant]
  5. TARKA [Suspect]
     Indication: HYPERTENSION
     Dosage: UNK, ORAL
     Route: 048
     Dates: end: 20120218
  6. PLAVIX [Suspect]
     Dosage: 75 MG, QD, ORAL
     Route: 048
     Dates: end: 20120220
  7. MEDIATENSYL /00631801/ (URAPIDIL) [Suspect]
     Indication: HYPERTENSION
     Dosage: 30 MG, BID
     Dates: end: 20120220
  8. IMOVANE (ZOPICLONE) [Concomitant]

REACTIONS (4)
  - RENAL TUBULAR NECROSIS [None]
  - RENAL FAILURE ACUTE [None]
  - PAIN [None]
  - TUBULOINTERSTITIAL NEPHRITIS [None]
